FAERS Safety Report 6523531-7 (Version None)
Quarter: 2009Q4

REPORT INFORMATION
  Report Type: 
  Country: None (occurrence: None)
  Receive Date: 20091231
  Receipt Date: 20091221
  Transmission Date: 20100525
  Serious: Yes (Other)
  Sender: FDA-Public Use
  Company Number: PHEH2009US15946

PATIENT
  Sex: Male

DRUGS (7)
  1. DIOVAN HCT [Suspect]
  2. DIOVAN [Suspect]
     Dosage: 100 MG, QD
  3. LISINOPRIL [Suspect]
     Dosage: 20 MG, QD
     Route: 048
  4. NAPROSYN [Suspect]
  5. ALEVE [Suspect]
  6. LASIX [Concomitant]
     Dosage: 40 MG, QD
     Route: 048
  7. DILTIAZEM [Concomitant]
     Dosage: 120 MG, BID
     Route: 048

REACTIONS (6)
  - ASTHENIA [None]
  - FATIGUE [None]
  - FLUID OVERLOAD [None]
  - KIDNEY INFECTION [None]
  - RENAL FAILURE CHRONIC [None]
  - TUBULOINTERSTITIAL NEPHRITIS [None]
